FAERS Safety Report 10050575 (Version 1)
Quarter: 2014Q2

REPORT INFORMATION
  Report Type: Spontaneous
  Country: US (occurrence: US)
  Receive Date: 20140401
  Receipt Date: 20140401
  Transmission Date: 20141212
  Serious: No
  Sender: FDA-Public Use
  Company Number: US-ASTRAZENECA-2013SE88918

PATIENT
  Sex: Male

DRUGS (4)
  1. NEXIUM [Suspect]
     Indication: HYPERCHLORHYDRIA
     Route: 048
  2. BENICAR [Concomitant]
  3. ZANTAC [Concomitant]
  4. PRILOSEC [Concomitant]

REACTIONS (1)
  - Ulcer [Not Recovered/Not Resolved]
